FAERS Safety Report 19548879 (Version 1)
Quarter: 2021Q3

REPORT INFORMATION
  Report Type: Spontaneous
  Country: SG (occurrence: SG)
  Receive Date: 20210714
  Receipt Date: 20210714
  Transmission Date: 20211014
  Serious: Yes (Hospitalization)
  Sender: FDA-Public Use
  Company Number: SG-LUPIN PHARMACEUTICALS INC.-2021-11749

PATIENT
  Age: 45 Year
  Sex: Female

DRUGS (11)
  1. MOXIFLOXACIN. [Suspect]
     Active Substance: MOXIFLOXACIN
     Indication: PSEUDOMONAS INFECTION
     Dosage: UNK (EYE DROP)
     Route: 047
  2. ATROPINE. [Concomitant]
     Active Substance: ATROPINE
     Indication: HYPHAEMA
     Dosage: UNK UNK, TID
     Route: 065
  3. CEFAZOLINE [Suspect]
     Active Substance: CEFAZOLIN SODIUM
     Indication: HYPHAEMA
  4. ATROPINE. [Concomitant]
     Active Substance: ATROPINE
     Indication: PSEUDOMONAS INFECTION
  5. CEFAZOLINE [Suspect]
     Active Substance: CEFAZOLIN SODIUM
     Indication: PSEUDOMONAS INFECTION
     Dosage: 50 MILLIGRAM PER MILLILITRE (ALTERNATING EVERY HALF HOUR WITH GENTAMICIN)
     Route: 065
  6. GENTAMICIN. [Suspect]
     Active Substance: GENTAMICIN
     Indication: PSEUDOMONAS INFECTION
     Dosage: 14 MILLIGRAM PER MILLILITRE (ALTERNATING EVERY HALF HOUR WITH CEFAZOLIN)
     Route: 065
  7. GENTAMICIN. [Suspect]
     Active Substance: GENTAMICIN
     Indication: HYPHAEMA
  8. ASPIRIN. [Concomitant]
     Active Substance: ASPIRIN
     Indication: MYOCARDIAL ISCHAEMIA
     Dosage: UNK
     Route: 065
  9. PRED FORTE [Concomitant]
     Active Substance: PREDNISOLONE ACETATE
     Indication: PSEUDOMONAS INFECTION
     Dosage: UNK UNK, QID
     Route: 047
  10. DOXYCYCLINE. [Suspect]
     Active Substance: DOXYCYCLINE
     Indication: PSEUDOMONAS INFECTION
     Dosage: 100 MILLIGRAM, BID
     Route: 048
  11. CIPROFLOXACIN. [Suspect]
     Active Substance: CIPROFLOXACIN
     Indication: PSEUDOMONAS INFECTION
     Dosage: UNK (EYE DROP)
     Route: 047

REACTIONS (1)
  - Drug ineffective [Unknown]
